FAERS Safety Report 13575399 (Version 2)
Quarter: 2017Q2

REPORT INFORMATION
  Report Type: Spontaneous
  Country: US (occurrence: US)
  Receive Date: 20170524
  Receipt Date: 20170524
  Transmission Date: 20170830
  Serious: Yes (Life-Threatening, Hospitalization, Other)
  Sender: FDA-Public Use
  Company Number: US-CIPLA LTD.-2017US08854

PATIENT

DRUGS (18)
  1. CITALOPRAM [Suspect]
     Active Substance: CITALOPRAM HYDROBROMIDE
     Indication: PROPHYLAXIS
     Dosage: UNK
     Route: 065
  2. FLUCONAZOLE. [Suspect]
     Active Substance: FLUCONAZOLE
     Indication: PROPHYLAXIS
     Dosage: 400 MG, EVERY 24 HR
     Route: 048
  3. CEFEPIME [Suspect]
     Active Substance: CEFEPIME HYDROCHLORIDE
     Indication: LUNG INFECTION
     Dosage: 2 G, EVERY 8 HOURS
     Route: 042
  4. VANCOMYCIN [Suspect]
     Active Substance: VANCOMYCIN
     Indication: LUNG INFECTION
     Dosage: 1500 MG, EVERY 12 HOURS
     Route: 042
  5. METHYLPREDNISONE [Suspect]
     Active Substance: METHYLPREDNISOLONE
     Indication: IMMUNOSUPPRESSION
     Dosage: 1000 MG, ONCE ON THE DAY OF TRANSPLANTATION FOLLOWED BY A DAILY IV DOSE TAPERED BY 50% UNTIL POD 6
     Route: 042
  6. MYCOPHENOLATE MOFETIL. [Suspect]
     Active Substance: MYCOPHENOLATE MOFETIL
     Indication: IMMUNOSUPPRESSION
     Dosage: 1000 MG, EVERY 12 HR
     Route: 048
  7. TACROLIMUS. [Suspect]
     Active Substance: TACROLIMUS
     Indication: IMMUNOSUPPRESSION
     Dosage: 1 MG, EVERY 24 HR ADJUSTED TO THERAPEUTIC LEVEL
     Route: 048
  8. SULFAMETHOXAZOLE/ TRIMETHOPRIM [Suspect]
     Active Substance: SULFAMETHOXAZOLE\TRIMETHOPRIM
     Indication: PROPHYLAXIS
     Dosage: 400MG/80MG, EVERY 24 HR ON POD 3 THROUGH 10
     Route: 048
  9. VALGANCYCLOVIR [Suspect]
     Active Substance: VALGANCICLOVIR
     Indication: PROPHYLAXIS
     Dosage: 450 MG, EVERY 24 HR
     Route: 048
  10. MYCOPHENOLATE MOFETIL. [Suspect]
     Active Substance: MYCOPHENOLATE MOFETIL
     Dosage: 500 MG, BID ON POD 11
     Route: 065
  11. DEXAMETHASONE. [Suspect]
     Active Substance: DEXAMETHASONE
     Dosage: 40 MG, ONE DOSE
     Route: 042
  12. IVIG (INTRAVENOUS IMMUNOGLOBULIN) [Suspect]
     Active Substance: HUMAN IMMUNOGLOBULIN G
     Dosage: 500 MG/KG, EVERY 24 HR FOR 4 DAYS ON POD 15 THROUGH 18
     Route: 042
  13. BASILIXIMAB [Suspect]
     Active Substance: BASILIXIMAB
     Indication: IMMUNOSUPPRESSION
     Dosage: 20 MG, ONCE DAILY
     Route: 042
  14. GABAPENTIN. [Suspect]
     Active Substance: GABAPENTIN
     Dosage: UNK
     Route: 065
  15. ATOVAQUONE. [Suspect]
     Active Substance: ATOVAQUONE
     Indication: PROPHYLAXIS
     Dosage: UNK
     Route: 065
  16. METHYLPREDNISONE [Suspect]
     Active Substance: METHYLPREDNISOLONE
     Dosage: UNK, DAILY DOSE TAPERED BY 50%
     Route: 042
  17. FOLIC ACID. [Suspect]
     Active Substance: FOLIC ACID
     Indication: SUPPLEMENTATION THERAPY
     Dosage: 1 MG, DAILY
     Route: 048
  18. METHYLPREDNISONE [Suspect]
     Active Substance: METHYLPREDNISOLONE
     Dosage: 30 MG, EVERY 24 HR
     Route: 048

REACTIONS (5)
  - Treatment noncompliance [Unknown]
  - Lung infection [Unknown]
  - Passenger lymphocyte syndrome [Recovered/Resolved]
  - Alanine aminotransferase increased [Unknown]
  - Drug level decreased [Unknown]
